FAERS Safety Report 4778452-7 (Version None)
Quarter: 2005Q3

REPORT INFORMATION
  Report Type: 
  Country: None (occurrence: None)
  Receive Date: 20050923
  Receipt Date: 20050923
  Transmission Date: 20060218
  Serious: Yes (Life-Threatening)
  Sender: FDA-Public Use
  Company Number: None

PATIENT
  Sex: Male
  Weight: 85.2762 kg

DRUGS (5)
  1. MYLOTARG [Suspect]
     Indication: ACUTE MYELOID LEUKAEMIA
     Dosage: 18 MG   ONE TIME   IV DRIP
     Route: 041
     Dates: start: 20050920, end: 20050920
  2. TYLENOL (CAPLET) [Concomitant]
  3. KYTRIL [Concomitant]
  4. DECADRON [Concomitant]
  5. BENADRYL [Concomitant]

REACTIONS (7)
  - AGONAL RHYTHM [None]
  - BLOOD PRESSURE DECREASED [None]
  - CARDIO-RESPIRATORY ARREST [None]
  - DEPRESSED LEVEL OF CONSCIOUSNESS [None]
  - FEELING COLD [None]
  - HEART RATE INCREASED [None]
  - INFUSION RELATED REACTION [None]
